FAERS Safety Report 5082004-1 (Version None)
Quarter: 2006Q3

REPORT INFORMATION
  Report Type: 
  Country: None (occurrence: None)
  Receive Date: 20060811
  Receipt Date: 20060726
  Transmission Date: 20061208
  Serious: Yes (Other)
  Sender: FDA-Public Use
  Company Number: DSA_28570_2006

PATIENT
  Sex: Female

DRUGS (5)
  1. LORAX /00273201/ [Suspect]
     Indication: INSOMNIA
     Dosage: 2 MG Q DAY PO
     Route: 048
  2. LORAX /00273201/ [Suspect]
     Indication: INSOMNIA
     Dosage: 1 MG Q DAY PO
     Route: 048
     Dates: start: 19900101
  3. OLCADIL [Suspect]
     Dosage: DF PO
     Route: 048
  4. CORGARD [Concomitant]
  5. ENALAPRIL MALEATE [Concomitant]

REACTIONS (7)
  - BLOOD PRESSURE INCREASED [None]
  - CONDITION AGGRAVATED [None]
  - CONFUSIONAL STATE [None]
  - DECREASED APPETITE [None]
  - DIZZINESS [None]
  - NERVOUSNESS [None]
  - PARAESTHESIA [None]
